FAERS Safety Report 18857097 (Version 1)
Quarter: 2021Q1

REPORT INFORMATION
  Report Type: Spontaneous
  Country: FR (occurrence: FR)
  Receive Date: 20210208
  Receipt Date: 20210208
  Transmission Date: 20210420
  Serious: Yes (Hospitalization)
  Sender: FDA-Public Use
  Company Number: FR-SUN PHARMACEUTICAL INDUSTRIES LTD-2021RR-279496

PATIENT
  Age: 16 Year
  Sex: Male
  Weight: 48 kg

DRUGS (5)
  1. CLARITHROMYCIN. [Suspect]
     Active Substance: CLARITHROMYCIN
     Indication: PNEUMONIA
     Dosage: 500 MILLIGRAM, DAILY
     Route: 048
     Dates: start: 20210107, end: 20210110
  2. ORACILLINE 1 000 000 UI, COMPRIME SECABLE [Concomitant]
     Active Substance: PENICILLIN V
     Indication: PRODUCT USED FOR UNKNOWN INDICATION
     Dosage: UNK
     Route: 065
  3. AMOXICILLIN. [Suspect]
     Active Substance: AMOXICILLIN
     Indication: PNEUMONIA
     Dosage: 1500 MILLIGRAM, DAILY
     Route: 048
     Dates: start: 20210108, end: 20210110
  4. ASPEGIC [Concomitant]
     Indication: PRODUCT USED FOR UNKNOWN INDICATION
     Dosage: UNK
     Route: 065
  5. SPECIAFOLDINE 5 MG, COMPRIME [Concomitant]
     Active Substance: FOLIC ACID
     Indication: PRODUCT USED FOR UNKNOWN INDICATION
     Dosage: UNK
     Route: 065

REACTIONS (2)
  - Hallucinations, mixed [Recovering/Resolving]
  - Brief psychotic disorder with marked stressors [Recovering/Resolving]

NARRATIVE: CASE EVENT DATE: 20210109
